FAERS Safety Report 6601391-3 (Version None)
Quarter: 2010Q1

REPORT INFORMATION
  Report Type: 
  Country: None (occurrence: None)
  Receive Date: 20100224
  Receipt Date: 20100224
  Transmission Date: 20100710
  Serious: No
  Sender: FDA-Public Use
  Company Number: None

PATIENT
  Age: 40 Year
  Sex: Female
  Weight: 65.9 kg

DRUGS (1)
  1. PURELAX POLYETHYLENE GLYCOL 3350 POWDER 17 G (1 CAPFUL) CVS PHARMACY I [Suspect]
     Indication: IRRITABLE BOWEL SYNDROME
     Dosage: (1 CAPFUL) (17G) 1X PER DAY ORAL
     Route: 048
     Dates: start: 20100122

REACTIONS (5)
  - ABDOMINAL PAIN LOWER [None]
  - HEART RATE INCREASED [None]
  - HYPERHIDROSIS [None]
  - NAUSEA [None]
  - TREMOR [None]
